FAERS Safety Report 20915822 (Version 1)
Quarter: 2022Q2

REPORT INFORMATION
  Report Type: Spontaneous
  Country: US (occurrence: US)
  Receive Date: 20220604
  Receipt Date: 20220604
  Transmission Date: 20220721
  Serious: No
  Sender: FDA-Public Use
  Company Number: US-SA-SAC20220527001863

PATIENT

DRUGS (1)
  1. DUPIXENT [Suspect]
     Active Substance: DUPILUMAB
     Dosage: UNKNOWN

REACTIONS (7)
  - Fatigue [Unknown]
  - Apathy [Unknown]
  - Oropharyngeal pain [Unknown]
  - Dysphonia [Unknown]
  - Odynophagia [Unknown]
  - Nasal congestion [Unknown]
  - Rash [Unknown]

NARRATIVE: CASE EVENT DATE: 20220513
